FAERS Safety Report 8317957-9 (Version None)
Quarter: 2012Q2

REPORT INFORMATION
  Report Type: 
  Country: None (occurrence: None)
  Receive Date: 20120427
  Receipt Date: 20120420
  Transmission Date: 20120825
  Serious: Yes (Other)
  Sender: FDA-Public Use
  Company Number: US-VIROPHARMA INCORPORATED-20120302CINRY2703

PATIENT
  Sex: Female

DRUGS (2)
  1. CINRYZE [Suspect]
     Indication: HEREDITARY ANGIOEDEMA
     Dates: start: 20110101, end: 20120207
  2. BIRTH CONTROL [Suspect]
     Indication: CONTRACEPTION
     Dosage: UNKNOWN
     Route: 065
     Dates: end: 20120207

REACTIONS (5)
  - DIZZINESS [None]
  - CHEST DISCOMFORT [None]
  - HEADACHE [None]
  - HEMIPARESIS [None]
  - DYSARTHRIA [None]
